FAERS Safety Report 10179538 (Version 1)
Quarter: 2014Q2

REPORT INFORMATION
  Report Type: Spontaneous
  Country: US (occurrence: None)
  Receive Date: 20140516
  Receipt Date: 20140516
  Transmission Date: 20141212
  Serious: Yes (Hospitalization)
  Sender: FDA-Public Use
  Company Number: 2014CT000057

PATIENT
  Age: 39 Year
  Sex: Male
  Weight: 127.01 kg

DRUGS (2)
  1. KORLYM [Suspect]
     Indication: CUSHING^S SYNDROME
     Route: 048
  2. COREG [Concomitant]

REACTIONS (7)
  - Nausea [None]
  - Fatigue [None]
  - Dizziness [None]
  - Endocrine disorder [None]
  - Loss of control of legs [None]
  - Dysstasia [None]
  - Paresis [None]
